FAERS Safety Report 11472946 (Version 1)
Quarter: 2015Q3

REPORT INFORMATION
  Report Type: Spontaneous
  Country: US (occurrence: US)
  Receive Date: 20150908
  Receipt Date: 20150908
  Transmission Date: 20151125
  Serious: Yes (Other)
  Sender: FDA-Public Use
  Company Number: US-JAZZ-2013-US-003172

PATIENT
  Sex: Female
  Weight: 48.98 kg

DRUGS (8)
  1. XYREM [Suspect]
     Active Substance: SODIUM OXYBATE
     Indication: NARCOLEPSY
     Dosage: 2.25 G, BID
     Route: 048
     Dates: start: 201310, end: 20131030
  2. EFFEXOR [Suspect]
     Active Substance: VENLAFAXINE HYDROCHLORIDE
     Dosage: 412.5 MG, QD
     Route: 048
     Dates: start: 201409
  3. XYREM [Suspect]
     Active Substance: SODIUM OXYBATE
     Dosage: 4.0 G, SECOND DOSE
     Route: 048
     Dates: start: 201405
  4. XYREM [Suspect]
     Active Substance: SODIUM OXYBATE
     Dosage: 4.5 G, BID
     Route: 048
     Dates: start: 201402, end: 201405
  5. XYREM [Suspect]
     Active Substance: SODIUM OXYBATE
     Dosage: 4.5 G, FIRST DOSE
     Route: 048
     Dates: start: 201405
  6. XYREM [Suspect]
     Active Substance: SODIUM OXYBATE
     Indication: SOMNOLENCE
     Dosage: 4.5 G, FIRST DOSE
     Route: 048
     Dates: start: 201401, end: 2014
  7. EFFEXOR [Suspect]
     Active Substance: VENLAFAXINE HYDROCHLORIDE
     Indication: DEPRESSION
     Dosage: 450 MG, QD
     Route: 048
     Dates: start: 201405, end: 201409
  8. XYREM [Suspect]
     Active Substance: SODIUM OXYBATE
     Dosage: 2.25 G, SECOND DOSE
     Route: 048
     Dates: start: 201401, end: 2014

REACTIONS (5)
  - Dyskinesia [Not Recovered/Not Resolved]
  - Disturbance in attention [Recovering/Resolving]
  - Depression [Recovering/Resolving]
  - Tooth disorder [Not Recovered/Not Resolved]
  - Paraesthesia [Recovering/Resolving]

NARRATIVE: CASE EVENT DATE: 2013
